FAERS Safety Report 4311504-4 (Version None)
Quarter: 2004Q1

REPORT INFORMATION
  Report Type: 
  Country: None (occurrence: None)
  Receive Date: 20040302
  Receipt Date: 20031119
  Transmission Date: 20041129
  Serious: No
  Sender: FDA-Public Use
  Company Number: 200326189BWH

PATIENT
  Age: 68 Year
  Sex: Male

DRUGS (9)
  1. LEVITRA [Suspect]
     Indication: ERECTILE DYSFUNCTION
     Dosage: 10 MG, TOTAL DAILY, ORAL
     Route: 048
     Dates: start: 20031016
  2. DIAZIDE [Concomitant]
  3. HYTRIN [Concomitant]
  4. ZESTRIL [Concomitant]
  5. ZOCOR [Concomitant]
  6. FOLIC ACID [Concomitant]
  7. FIORICET [Concomitant]
  8. PROPACET 100 [Concomitant]
  9. VIAGRA [Concomitant]

REACTIONS (1)
  - DIZZINESS [None]
